FAERS Safety Report 11621527 (Version 2)
Quarter: 2015Q4

REPORT INFORMATION
  Report Type: Spontaneous
  Country: IT (occurrence: IT)
  Receive Date: 20151013
  Receipt Date: 20151015
  Transmission Date: 20160304
  Serious: Yes (Hospitalization)
  Sender: FDA-Public Use
  Company Number: IT-009507513-1510ITA003628

PATIENT
  Age: 22 Year
  Sex: Female

DRUGS (3)
  1. PEGINTRON [Suspect]
     Active Substance: PEGINTERFERON ALFA-2B
     Indication: HEPATITIS C
     Dosage: TOTAL DAILY DOSE 80 MICROGRAM, WEEKLY
     Route: 058
     Dates: start: 20140906, end: 20150514
  2. REBETOL [Suspect]
     Active Substance: RIBAVIRIN
     Indication: HEPATITIS C
     Dosage: 4 DF, UNK
     Route: 048
     Dates: start: 20140906, end: 20150514
  3. TACHIPIRINA [Concomitant]
     Active Substance: ACETAMINOPHEN
     Indication: HEPATITIS C
     Dosage: 1 DF, UNK
     Route: 048
     Dates: start: 20140906, end: 20150514

REACTIONS (2)
  - Affective disorder [Unknown]
  - Hypothyroidism [Unknown]

NARRATIVE: CASE EVENT DATE: 20150514
